FAERS Safety Report 9026007 (Version 1)
Quarter: 2013Q1

REPORT INFORMATION
  Report Type: Spontaneous
  Country: FR (occurrence: FR)
  Receive Date: 20130122
  Receipt Date: 20130122
  Transmission Date: 20140127
  Serious: Yes (Other)
  Sender: FDA-Public Use
  Company Number: FR-ROCHE-1180353

PATIENT
  Age: 83 Year
  Sex: Female

DRUGS (11)
  1. ROCEPHINE [Suspect]
     Indication: LUNG DISORDER
     Route: 030
     Dates: start: 20121111, end: 20121120
  2. COLCHICINE [Suspect]
     Indication: GOUT
     Route: 048
     Dates: start: 20121107
  3. SINTROM [Suspect]
     Indication: PRODUCT USED FOR UNKNOWN INDICATION
     Route: 065
     Dates: end: 20121116
  4. SINTROM [Suspect]
     Route: 065
  5. SEROPRAM (FRANCE) [Concomitant]
  6. LEVOTHYROX [Concomitant]
  7. LANTUS [Concomitant]
  8. LASILIX [Concomitant]
  9. RISPERDAL [Concomitant]
  10. IMOVANE [Concomitant]
  11. DUROGESIC [Concomitant]

REACTIONS (3)
  - International normalised ratio increased [Recovered/Resolved]
  - Confusional state [None]
  - Lung disorder [None]
